FAERS Safety Report 9888264 (Version 2)
Quarter: 2014Q1

REPORT INFORMATION
  Report Type: Spontaneous
  Country: ES (occurrence: ES)
  Receive Date: 20140211
  Receipt Date: 20140307
  Transmission Date: 20141002
  Serious: Yes (Hospitalization)
  Sender: FDA-Public Use
  Company Number: ES-009507513-1402ESP003850

PATIENT
  Age: 83 Year
  Sex: Female
  Weight: 70 kg

DRUGS (8)
  1. MK-0000 [Suspect]
     Dosage: UNK
  2. EUCREAS [Suspect]
     Indication: DIABETES MELLITUS
     Dosage: 100/2000 MG, Q12H
     Route: 048
     Dates: start: 20130521, end: 20140131
  3. AMARYL [Concomitant]
     Indication: DIABETES MELLITUS
     Dosage: UNK, QD
  4. ACARBOSE [Concomitant]
     Indication: DIABETES MELLITUS
     Dosage: UNK, QD
  5. LANTUS [Concomitant]
     Indication: DIABETES MELLITUS
     Dosage: UNK
     Dates: start: 201401
  6. LOSARTAN POTASSIUM (+) HYDROCHLOROTHIAZIDE [Concomitant]
     Dosage: UNK, QD
  7. SIMVASTATIN [Concomitant]
  8. AMLODIPINE [Concomitant]
     Dosage: UNK, QD

REACTIONS (5)
  - Transient ischaemic attack [Recovered/Resolved]
  - Urinary tract infection [Unknown]
  - Hyperglycaemia [Unknown]
  - Diabetes mellitus inadequate control [Unknown]
  - Speech disorder [Recovered/Resolved]
